FAERS Safety Report 15455987 (Version 1)
Quarter: 2018Q4

REPORT INFORMATION
  Report Type: Report from Study
  Country: ES (occurrence: ES)
  Receive Date: 20181002
  Receipt Date: 20181002
  Transmission Date: 20190204
  Serious: Yes (Hospitalization)
  Sender: FDA-Public Use
  Company Number: ES-MYLANLABS-2018M1071128

PATIENT
  Age: 65 Year
  Sex: Male

DRUGS (4)
  1. RAMIPRIL. [Interacting]
     Active Substance: RAMIPRIL
     Indication: HYPERTENSION
     Dosage: 5 MG, QD
     Route: 048
     Dates: start: 20160419, end: 20171006
  2. TACROLIMUS. [Suspect]
     Active Substance: TACROLIMUS
     Indication: LIVER TRANSPLANT
     Dosage: 6 MG, QD
     Route: 048
     Dates: start: 20141212
  3. AMOXICILINA + ACIDO CLAVULANICO [Concomitant]
     Active Substance: AMOXICILLIN\CLAVULANIC ACID
     Indication: PROSTATITIS
     Dosage: 1.5 G, QD
     Route: 048
     Dates: start: 20170821, end: 20170908
  4. MICOFENOLATO DE MOFETILA [Interacting]
     Active Substance: MYCOPHENOLATE MOFETIL
     Indication: LIVER TRANSPLANT
     Dosage: 1 MG, QD
     Route: 048
     Dates: start: 20141212

REACTIONS (2)
  - Acute kidney injury [Recovered/Resolved]
  - Drug interaction [Unknown]

NARRATIVE: CASE EVENT DATE: 201709
